FAERS Safety Report 7450495-4 (Version None)
Quarter: 2011Q2

REPORT INFORMATION
  Report Type: 
  Country: None (occurrence: None)
  Receive Date: 20110502
  Receipt Date: 20110418
  Transmission Date: 20111010
  Serious: Yes (Other)
  Sender: FDA-Public Use
  Company Number: PHHY2011JP18328

PATIENT
  Sex: Male
  Weight: 71 kg

DRUGS (5)
  1. DIOVAN [Suspect]
     Indication: HYPERTENSION
     Dosage: 40 MG, QD
     Route: 048
     Dates: start: 20100324, end: 20100603
  2. LANSOPRAZOLE [Concomitant]
     Dosage: 5 MG, UNK
     Route: 048
     Dates: start: 20100706
  3. DIOVAN [Suspect]
     Dosage: 80 MG, QD
     Route: 048
     Dates: start: 20100604, end: 20100705
  4. CO-DIOVAN [Suspect]
     Indication: HYPERTENSION
     Dosage: 1 DF, QD
     Route: 048
     Dates: start: 20100706, end: 20110128
  5. ATELEC [Concomitant]
     Dosage: 10 MG, UNK
     Route: 048
     Dates: start: 20101001

REACTIONS (10)
  - OCULAR ICTERUS [None]
  - JAUNDICE [None]
  - GALLBLADDER DISORDER [None]
  - ABDOMINAL PAIN UPPER [None]
  - HEPATIC FUNCTION ABNORMAL [None]
  - VOMITING [None]
  - HAEMANGIOMA OF LIVER [None]
  - TENDERNESS [None]
  - BACK PAIN [None]
  - LYMPHOCYTE STIMULATION TEST POSITIVE [None]
